FAERS Safety Report 4569493-3 (Version None)
Quarter: 2005Q1

REPORT INFORMATION
  Report Type: 
  Country: None (occurrence: None)
  Receive Date: 20050201
  Receipt Date: 20050117
  Transmission Date: 20050727
  Serious: Yes (Hospitalization)
  Sender: FDA-Public Use
  Company Number: BRO-002166

PATIENT
  Age: 72 Year
  Sex: Male

DRUGS (1)
  1. IOPAMIDOL-300 [Suspect]
     Indication: ANGIOGRAM CEREBRAL
     Dosage: 260 ML , IA
     Route: 014
     Dates: start: 19990402, end: 19990402

REACTIONS (6)
  - APHASIA [None]
  - BLOOD BRAIN BARRIER DEFECT [None]
  - BRAIN OEDEMA [None]
  - DEPRESSED LEVEL OF CONSCIOUSNESS [None]
  - HEMIPARESIS [None]
  - PARALYSIS [None]
